FAERS Safety Report 4524035-3 (Version None)
Quarter: 2004Q4

REPORT INFORMATION
  Report Type: 
  Country: None (occurrence: None)
  Receive Date: 20041209
  Receipt Date: 20041125
  Transmission Date: 20050328
  Serious: Yes (Hospitalization)
  Sender: FDA-Public Use
  Company Number: 2004-115255-NL

PATIENT
  Age: 40 Year
  Sex: Female

DRUGS (3)
  1. DESOGESTREL AND ETHINYL ESTRADIOL [Suspect]
     Dosage: DF
     Dates: start: 20031023
  2. NAPROXEN SODIUM [Concomitant]
  3. IRON SULFATETHIAMIN COMPOUND TAB [Concomitant]

REACTIONS (7)
  - CHEST PAIN [None]
  - COLITIS ISCHAEMIC [None]
  - DYSPNOEA [None]
  - PROCTALGIA [None]
  - RECTAL HAEMORRHAGE [None]
  - VOMITING [None]
  - WEIGHT DECREASED [None]
